FAERS Safety Report 15046572 (Version 3)
Quarter: 2018Q2

REPORT INFORMATION
  Report Type: Spontaneous
  Country: FR (occurrence: FR)
  Receive Date: 20180621
  Receipt Date: 20180626
  Transmission Date: 20180711
  Serious: Yes (Hospitalization)
  Sender: FDA-Public Use
  Company Number: FR-TEVA-2018-FR-911076

PATIENT
  Age: 70 Year
  Sex: Male
  Weight: 72 kg

DRUGS (15)
  1. DOXORUBICIN TEVA [Suspect]
     Active Substance: DOXORUBICIN
     Indication: ACUTE LYMPHOCYTIC LEUKAEMIA
     Route: 041
     Dates: start: 20180409, end: 20180409
  2. TRUXIMA [Suspect]
     Active Substance: RITUXIMAB
     Indication: ACUTE LYMPHOCYTIC LEUKAEMIA
     Route: 041
     Dates: start: 20180409, end: 20180409
  3. METHOTREXATE (METHOTREXATE SODIUM) [Suspect]
     Active Substance: METHOTREXATE SODIUM
     Indication: ACUTE LYMPHOCYTIC LEUKAEMIA
     Route: 041
     Dates: start: 20180410, end: 20180410
  4. RETACRIT 30000 UI/0,75 ML, SOLUTION INJECTABLE EN SERINGUE PR?REMPLIE [Concomitant]
  5. UROMITEXAN [Suspect]
     Active Substance: MESNA
     Indication: ACUTE LYMPHOCYTIC LEUKAEMIA
     Route: 041
     Dates: start: 20180409, end: 20180409
  6. DEDROGYL 15 MG/ 100 ML, SOLUTION BUVABLE EN GOUTTES [Concomitant]
     Dosage: 5 GTT DAILY;
     Route: 048
  7. CARDENSIEL 1,25 MG, COMPRIM? PELLICUL? [Concomitant]
     Active Substance: BISOPROLOL FUMARATE
     Dosage: 1.25 MILLIGRAM DAILY;
     Route: 048
  8. BACTRIM [Concomitant]
     Active Substance: SULFAMETHOXAZOLE\TRIMETHOPRIM
     Route: 048
  9. NOXAFIL 100 MG, COMPRIM? GASTRO-R?SISTANT [Concomitant]
     Dosage: 300 MILLIGRAM DAILY;
     Route: 048
  10. ENDOXAN [Suspect]
     Active Substance: CYCLOPHOSPHAMIDE
     Indication: ACUTE LYMPHOCYTIC LEUKAEMIA
     Route: 041
     Dates: start: 20180409, end: 20180409
  11. ZELITREX 500 MG, COMPRIM? ENROB? [Concomitant]
     Active Substance: VALACYCLOVIR HYDROCHLORIDE
     Dosage: 500 MILLIGRAM DAILY;
     Route: 048
  12. JOSIR L.P. 0,4 MG, MICROGRANULES ? LIB?RATION PROLONG?E EN G?LULE [Concomitant]
  13. VINCRISTINE TEVA [Suspect]
     Active Substance: VINCRISTINE
     Indication: ACUTE LYMPHOCYTIC LEUKAEMIA
     Route: 041
     Dates: start: 20180409, end: 20180409
  14. HALDOL [Concomitant]
     Active Substance: HALOPERIDOL
     Dosage: 5 GTT DAILY;
     Route: 048
  15. FOLINATE DE CALCIUM [Concomitant]
     Active Substance: LEUCOVORIN CALCIUM

REACTIONS (1)
  - Nephrogenic diabetes insipidus [Recovering/Resolving]

NARRATIVE: CASE EVENT DATE: 20180410
